FAERS Safety Report 7441877-5 (Version None)
Quarter: 2011Q2

REPORT INFORMATION
  Report Type: 
  Country: None (occurrence: None)
  Receive Date: 20110421
  Receipt Date: 20110412
  Transmission Date: 20111010
  Serious: Yes (Hospitalization)
  Sender: FDA-Public Use
  Company Number: WAES 1104USA02026

PATIENT
  Age: 16 Year
  Sex: Female

DRUGS (21)
  1. DECADRON [Suspect]
     Indication: ACUTE LYMPHOCYTIC LEUKAEMIA
     Dosage: 11 MG/TID/PO, 9 MG/BID/PO
     Route: 048
     Dates: start: 20110208, end: 20110214
  2. VINCRISTINE SULFATE [Suspect]
     Indication: ACUTE LYMPHOCYTIC LEUKAEMIA
     Dosage: 2 MG/DAILY/IV
     Route: 042
     Dates: start: 20110208, end: 20110208
  3. POLARAMINE [Concomitant]
  4. SEPTRA [Concomitant]
  5. TORIOL [Concomitant]
  6. VORICONAZOLE [Suspect]
     Indication: ASPERGILLOSIS
     Dosage: 360 MG/BID/IV, 240 MG/BID/IV
     Route: 042
     Dates: start: 20110122, end: 20110125
  7. VORICONAZOLE [Suspect]
     Indication: ASPERGILLOSIS
     Dosage: 360 MG/BID/IV, 240 MG/BID/IV
     Route: 042
     Dates: start: 20110121, end: 20110121
  8. ZOFRAN [Concomitant]
  9. FLUCONAZOLE [Concomitant]
  10. LEUCOVORIN CALCIUM [Concomitant]
  11. METHOTREXATE [Concomitant]
  12. CYTARABINE [Suspect]
     Indication: ACUTE LYMPHOCYTIC LEUKAEMIA
     Dosage: 1660 MG/IV
     Route: 042
     Dates: start: 20110212, end: 20110213
  13. MAXIDEX [Suspect]
     Indication: ACUTE LYMPHOCYTIC LEUKAEMIA
     Dosage: 0.2 MG/TID/OPHT OS
     Route: 047
     Dates: start: 20110212, end: 20110214
  14. DEPOCYT [Suspect]
     Indication: ACUTE LYMPHOCYTIC LEUKAEMIA
     Dosage: 35 MG/DAILY/INJ
     Dates: start: 20110216, end: 20110216
  15. ACETAMINOPHEN [Concomitant]
  16. OMEPRAZOLE [Concomitant]
  17. DECADRON PHOSPHATE [Suspect]
     Indication: ACUTE LEUKAEMIA
     Dosage: 9 MG/DAILY/INJ
     Dates: start: 20110216, end: 20110216
  18. SEGURIL [Concomitant]
  19. EMLA [Concomitant]
  20. PYRIDOXINE [Concomitant]
  21. ASPARAGINASE [Suspect]
     Indication: ACUTE LYMPHOCYTIC LEUKAEMIA
     Dosage: 1600 IU/1X/IM
     Route: 030
     Dates: start: 20110213, end: 20110213

REACTIONS (1)
  - PANCYTOPENIA [None]
